FAERS Safety Report 20738343 (Version 1)
Quarter: 2022Q2

REPORT INFORMATION
  Report Type: Other
  Country: CN (occurrence: None)
  Receive Date: 20220422
  Receipt Date: 20220422
  Transmission Date: 20220720
  Serious: Yes (Other)
  Sender: FDA-Public Use
  Company Number: CN-ROCHE-2182995

PATIENT
  Age: 65 Year
  Sex: Male
  Weight: 70 kg

DRUGS (4)
  1. AVASTIN [Suspect]
     Active Substance: BEVACIZUMAB
     Indication: Rectal cancer
     Route: 041
     Dates: start: 20170928, end: 20191128
  2. AVASTIN [Suspect]
     Active Substance: BEVACIZUMAB
     Route: 041
     Dates: start: 20200710, end: 20200910
  3. AVASTIN [Suspect]
     Active Substance: BEVACIZUMAB
     Route: 041
     Dates: end: 20201231
  4. AVASTIN [Suspect]
     Active Substance: BEVACIZUMAB
     Route: 042
     Dates: end: 20210805

REACTIONS (12)
  - Nasopharyngitis [Unknown]
  - Pyrexia [Unknown]
  - Protein urine present [Recovering/Resolving]
  - Loose tooth [Unknown]
  - Dental care [Recovering/Resolving]
  - Hepatic lesion [Unknown]
  - Pulpitis dental [Unknown]
  - Periodontitis [Unknown]
  - Tooth disorder [Recovering/Resolving]
  - Tooth extraction [Unknown]
  - Intestinal polyp [Recovered/Resolved]
  - Gingival pain [Unknown]

NARRATIVE: CASE EVENT DATE: 20191119
